FAERS Safety Report 23361056 (Version 4)
Quarter: 2024Q3

REPORT INFORMATION
  Report Type: Spontaneous
  Country: AR (occurrence: AR)
  Receive Date: 20240103
  Receipt Date: 20240905
  Transmission Date: 20241017
  Serious: No
  Sender: PFIZER
  Company Number: AR-PFIZER INC-PV202300200449

PATIENT
  Age: 14 Year
  Sex: Male

DRUGS (1)
  1. GENOTROPIN [Suspect]
     Active Substance: SOMATROPIN
     Indication: Short stature
     Dosage: 6 TIMES PER WEEK
     Dates: start: 20230719

REACTIONS (2)
  - Device leakage [Unknown]
  - Device failure [Unknown]

NARRATIVE: CASE EVENT DATE: 20231206
